FAERS Safety Report 11157401 (Version 1)
Quarter: 2015Q2

REPORT INFORMATION
  Report Type: Spontaneous
  Country: JP (occurrence: JP)
  Receive Date: 20150603
  Receipt Date: 20150603
  Transmission Date: 20150821
  Serious: Yes (Other)
  Sender: FDA-Public Use
  Company Number: JP-ROCHE-1585526

PATIENT
  Age: 56 Year
  Sex: Female
  Weight: 43 kg

DRUGS (25)
  1. UNASYN (JAPAN) [Concomitant]
     Indication: INFECTION
     Route: 048
     Dates: start: 20130703, end: 20130709
  2. PYDOXAL [Concomitant]
     Active Substance: PYRIDOXAL
     Indication: PROPHYLAXIS
     Route: 048
     Dates: start: 20130712, end: 20150311
  3. DECADRON [Concomitant]
     Active Substance: DEXAMETHASONE
     Indication: ANTIEMETIC SUPPORTIVE CARE
     Route: 048
     Dates: start: 20140221, end: 20140223
  4. PACLITAXEL. [Suspect]
     Active Substance: PACLITAXEL
     Indication: BREAST CANCER
     Route: 041
     Dates: start: 20130718, end: 20131219
  5. ADONA (JAPAN) [Concomitant]
     Indication: HAEMOSTASIS
     Route: 048
     Dates: start: 20130703, end: 20130828
  6. CELECOX [Concomitant]
     Active Substance: CELECOXIB
     Indication: ANALGESIC THERAPY
     Route: 048
     Dates: start: 20130704, end: 20140108
  7. CELECOX [Concomitant]
     Active Substance: CELECOXIB
     Indication: ANALGESIC THERAPY
     Route: 048
     Dates: start: 20140821, end: 20140918
  8. NAUZELIN [Concomitant]
     Active Substance: DOMPERIDONE
     Indication: ANTIEMETIC SUPPORTIVE CARE
     Route: 048
     Dates: start: 20140220, end: 20140226
  9. NAUZELIN [Concomitant]
     Active Substance: DOMPERIDONE
     Indication: ANTIEMETIC SUPPORTIVE CARE
     Route: 048
     Dates: start: 20140109, end: 20140115
  10. AVASTIN [Suspect]
     Active Substance: BEVACIZUMAB
     Indication: BREAST CANCER
     Dosage: TREATMENT LINE :3 COMPLETED TREATMENT CYCLE NUMBER: SEVEN CYCLES
     Route: 041
     Dates: start: 20140515, end: 20141120
  11. REBAMIPIDE [Concomitant]
     Active Substance: REBAMIPIDE
     Indication: PROPHYLAXIS
     Route: 048
     Dates: start: 20140821, end: 20140918
  12. EMEND [Concomitant]
     Active Substance: APREPITANT
     Indication: PROPHYLAXIS
     Route: 048
  13. NASEA [Concomitant]
     Active Substance: RAMOSETRON HYDROCHLORIDE
     Indication: ANTIEMETIC SUPPORTIVE CARE
     Route: 048
  14. EPIRUBICIN HYDROCHLORIDE. [Concomitant]
     Active Substance: EPIRUBICIN HYDROCHLORIDE
     Indication: BREAST CANCER
     Route: 041
     Dates: start: 20140109, end: 20140313
  15. PACLITAXEL. [Suspect]
     Active Substance: PACLITAXEL
     Route: 041
     Dates: start: 20140515, end: 20140828
  16. ENDOXAN [Concomitant]
     Active Substance: CYCLOPHOSPHAMIDE
     Indication: BREAST CANCER
     Route: 041
     Dates: start: 20140109, end: 20140313
  17. FERRUM (JAPAN) [Concomitant]
     Indication: ANAEMIA
     Route: 048
     Dates: start: 20130704, end: 20130828
  18. EMEND [Concomitant]
     Active Substance: APREPITANT
     Indication: PROPHYLAXIS
     Route: 048
  19. ZANTAC [Concomitant]
     Active Substance: RANITIDINE HYDROCHLORIDE
     Indication: HYPERCHLORHYDRIA
     Route: 048
     Dates: start: 20140109, end: 20150115
  20. MUCOSTA [Concomitant]
     Active Substance: REBAMIPIDE
     Indication: PROPHYLAXIS
     Route: 048
     Dates: start: 20130704, end: 20140102
  21. TSUMURA GOSHAJINKIGAN [Concomitant]
     Active Substance: HERBALS
     Indication: PROPHYLAXIS
     Route: 048
     Dates: start: 20140515, end: 20150115
  22. AVASTIN [Suspect]
     Active Substance: BEVACIZUMAB
     Indication: BREAST CANCER
     Route: 041
     Dates: start: 20130718, end: 20131219
  23. TSUMURA GOSHAJINKIGAN [Concomitant]
     Active Substance: HERBALS
     Indication: PROPHYLAXIS
     Dosage: REPORTED AS TSUMURA GOSHAJINKIGAN EXTRACT GRANULES FOR ETHICAL USE
     Route: 048
     Dates: start: 20130712, end: 20140108
  24. DECADRON [Concomitant]
     Active Substance: DEXAMETHASONE
     Indication: ANTIEMETIC SUPPORTIVE CARE
     Route: 048
     Dates: start: 20140110, end: 20140112
  25. ARTIST [Concomitant]
     Active Substance: CARVEDILOL
     Indication: CARDIAC FAILURE
     Route: 048
     Dates: start: 20150213

REACTIONS (3)
  - Organising pneumonia [Recovering/Resolving]
  - Hypertension [Unknown]
  - Lung disorder [Recovering/Resolving]

NARRATIVE: CASE EVENT DATE: 20131121
